FAERS Safety Report 5419813-2 (Version None)
Quarter: 2007Q3

REPORT INFORMATION
  Report Type: 
  Country: None (occurrence: None)
  Receive Date: 20070820
  Receipt Date: 20070808
  Transmission Date: 20080115
  Serious: Yes (Other)
  Sender: FDA-Public Use
  Company Number: US-PFIZER INC-2007054207

PATIENT
  Sex: Female
  Weight: 78 kg

DRUGS (8)
  1. LYRICA [Suspect]
     Indication: SPINAL DISORDER
  2. LYRICA [Suspect]
     Indication: PAIN
  3. AMITRIPTYLINE HCL [Concomitant]
  4. ATENOLOL [Concomitant]
  5. VALIUM [Concomitant]
  6. TRAZODONE HCL [Concomitant]
     Indication: SLEEP DISORDER
  7. ALDACTONE [Concomitant]
  8. ALL OTHER THERAPEUTIC PRODUCTS [Concomitant]
     Indication: VERTIGO

REACTIONS (14)
  - CONSTIPATION [None]
  - DRUG INEFFECTIVE [None]
  - FOOD CRAVING [None]
  - GAIT DISTURBANCE [None]
  - HALLUCINATION [None]
  - HYPOAESTHESIA [None]
  - INTENTIONAL DRUG MISUSE [None]
  - OEDEMA PERIPHERAL [None]
  - POISONING [None]
  - RESTLESS LEGS SYNDROME [None]
  - SOMNOLENCE [None]
  - VISION BLURRED [None]
  - VISUAL DISTURBANCE [None]
  - WEIGHT INCREASED [None]
